FAERS Safety Report 16485032 (Version 1)
Quarter: 2019Q2

REPORT INFORMATION
  Report Type: Spontaneous
  Country: US (occurrence: US)
  Receive Date: 20190627
  Receipt Date: 20190627
  Transmission Date: 20190711
  Serious: No
  Sender: FDA-Public Use
  Company Number: US-NEOPHARMA INC-000129

PATIENT
  Age: 66 Year
  Sex: Female
  Weight: 81 kg

DRUGS (6)
  1. RADICAVA [Suspect]
     Active Substance: EDARAVONE
     Dosage: 60 MG OVER A 60-MINUTE, DAILY  FOR 10 DAYS OUT OF 14 DAYS FOLLOWED BY A 14 DAY DRUG-FREE PERIOD
     Route: 042
  2. MACROBID [Suspect]
     Active Substance: NITROFURANTOIN\NITROFURANTOIN MONOHYDRATE
     Indication: PRODUCT USED FOR UNKNOWN INDICATION
  3. BACTRIM [Suspect]
     Active Substance: SULFAMETHOXAZOLE\TRIMETHOPRIM
     Indication: PRODUCT USED FOR UNKNOWN INDICATION
  4. RADICAVA [Suspect]
     Active Substance: EDARAVONE
     Indication: AMYOTROPHIC LATERAL SCLEROSIS
     Dosage: 60 MG OVER A 60-MINUTE PERIOD, DAILY  FOR 14 DAYS, FOLLOWED BY A 14-DAY DRUG-FREE PERIOD
     Route: 042
  5. MELOXICAM. [Suspect]
     Active Substance: MELOXICAM
     Indication: PRODUCT USED FOR UNKNOWN INDICATION
  6. AUGMENTIN [Suspect]
     Active Substance: AMOXICILLIN\CLAVULANATE POTASSIUM
     Indication: PRODUCT USED FOR UNKNOWN INDICATION

REACTIONS (1)
  - Drug hypersensitivity [Unknown]
